FAERS Safety Report 10367926 (Version 1)
Quarter: 2014Q3

REPORT INFORMATION
  Report Type: Spontaneous
  Country: JP (occurrence: None)
  Receive Date: 20140805
  Receipt Date: 20140805
  Transmission Date: 20150326
  Serious: Yes (Hospitalization)
  Sender: FDA-Public Use
  Company Number: FK201403117

PATIENT
  Age: 17 Year
  Sex: Female

DRUGS (5)
  1. DOXORUBICIN (MANUFACTURER UNKNOWN) (DOXORUBICIN HYDROCHLORIDE) (DOXORUBICIN HYDROCHLORIDE) [Suspect]
     Active Substance: DOXORUBICIN
     Indication: ACUTE LYMPHOCYTIC LEUKAEMIA RECURRENT
     Dosage: 60 MG/M2, ON DAY 1 ?STOPPED
  2. ASPARAGINASE [Suspect]
     Active Substance: ASPARAGINASE
     Indication: ACUTE LYMPHOCYTIC LEUKAEMIA RECURRENT
     Dosage: STOPPED
  3. VINCRISTINE (VINCRISTINE) (VINCRISTINE) [Suspect]
     Active Substance: VINCRISTINE
     Indication: ACUTE LYMPHOCYTIC LEUKAEMIA RECURRENT
     Dosage: 1.5 MG/M2, HALF THE PLANNED DOSES, DAYS 1,8,15,22?STOPPED
  4. DEXAMETHASONE INJECTION (MANUFACTURER UNKNOWN) (DEXAMETHASONE SODIUM PHOSPHATE) (DEXAMETHASONE SODIUM PHOSPHATE) [Suspect]
     Active Substance: DEXAMETHASONE
     Indication: ACUTE LYMPHOCYTIC LEUKAEMIA RECURRENT
     Dosage: GRADUALLY DECREASING DOSE UNTIL DAY 28?STOPPED
  5. BORTEZOMIB [Suspect]
     Active Substance: BORTEZOMIB
     Indication: ACUTE LYMPHOCYTIC LEUKAEMIA RECURRENT
     Dosage: 1.3 MG/M2, ON DAYS 1, 4, 8?STOPPED

REACTIONS (7)
  - Pneumonia bacterial [None]
  - Platelet count abnormal [None]
  - Pancreatitis acute [None]
  - Bronchopulmonary aspergillosis [None]
  - Acute lymphocytic leukaemia recurrent [None]
  - Stem cell transplant [None]
  - Haematotoxicity [None]
